FAERS Safety Report 11390807 (Version 1)
Quarter: 2015Q3

REPORT INFORMATION
  Report Type: Spontaneous
  Country: US (occurrence: US)
  Receive Date: 20150818
  Receipt Date: 20150818
  Transmission Date: 20151125
  Serious: No
  Sender: FDA-Public Use
  Company Number: US-ROCHE-1386143

PATIENT
  Sex: Female

DRUGS (3)
  1. PEGASYS [Suspect]
     Active Substance: PEGINTERFERON ALFA-2A
     Indication: CHRONIC HEPATITIS C
     Route: 058
     Dates: start: 20140315
  2. RIBAVIRIN. [Suspect]
     Active Substance: RIBAVIRIN
     Indication: CHRONIC HEPATITIS C
     Dosage: 1000MG/DAY DIVIDED DOSES 600/400
     Route: 048
     Dates: start: 20140315
  3. SOVALDI [Suspect]
     Active Substance: SOFOSBUVIR
     Indication: CHRONIC HEPATITIS C
     Route: 065
     Dates: start: 20140315

REACTIONS (8)
  - Drug dose omission [Unknown]
  - Chest pain [Unknown]
  - Erythema [Unknown]
  - Malaise [Unknown]
  - Dyspnoea [Unknown]
  - Nervousness [Unknown]
  - Fatigue [Unknown]
  - Pain [Unknown]
